FAERS Safety Report 4708999-0 (Version None)
Quarter: 2005Q3

REPORT INFORMATION
  Report Type: 
  Country: None (occurrence: None)
  Receive Date: 20050707
  Receipt Date: 20050623
  Transmission Date: 20060218
  Serious: Yes (Death)
  Sender: FDA-Public Use
  Company Number: STXI-2002-00385

PATIENT
  Age: 12 Year
  Sex: Male

DRUGS (1)
  1. ADDERALL XR 10 [Suspect]
     Indication: ATTENTION DEFICIT/HYPERACTIVITY DISORDER
     Dosage: 10 MG, ONE DOSE
     Dates: start: 20020828

REACTIONS (2)
  - FALL [None]
  - SUDDEN CARDIAC DEATH [None]
